FAERS Safety Report 18783305 (Version 1)
Quarter: 2021Q1

REPORT INFORMATION
  Report Type: Report from Study
  Country: KR (occurrence: KR)
  Receive Date: 20210125
  Receipt Date: 20210125
  Transmission Date: 20210419
  Serious: Yes (Other)
  Sender: FDA-Public Use
  Company Number: KR-MYLANLABS-2021M1004374

PATIENT
  Age: 30 Year
  Sex: Male

DRUGS (2)
  1. VALPROATE [Interacting]
     Active Substance: VALPROIC ACID
     Indication: SCHIZOPHRENIA
     Dosage: 1000 MILLIGRAM
     Route: 065
  2. CLOZAPINE. [Suspect]
     Active Substance: CLOZAPINE
     Indication: SCHIZOPHRENIA
     Dosage: 350 MILLIGRAM
     Route: 065

REACTIONS (5)
  - Constipation [Unknown]
  - Tremor [Unknown]
  - Sedation complication [Unknown]
  - Drug interaction [Unknown]
  - Electrocardiogram QT prolonged [Unknown]
